FAERS Safety Report 10935251 (Version 1)
Quarter: 2015Q1

REPORT INFORMATION
  Report Type: Spontaneous
  Country: US (occurrence: None)
  Receive Date: 20150129
  Receipt Date: 20150129
  Transmission Date: 20150721
  Serious: No
  Sender: FDA-Public Use
  Company Number: A-NJ2014-106841

PATIENT
  Age: 78 Year
  Sex: Female

DRUGS (9)
  1. LATANOPROST. [Concomitant]
     Active Substance: LATANOPROST
  2. NITROFURANTOIN (MONOHYDRATE/MACROCRYSTALS) (NITROFURANTOIN) [Concomitant]
  3. FUROSEMIDE. [Concomitant]
     Active Substance: FUROSEMIDE
  4. PROLIA [Concomitant]
     Active Substance: DENOSUMAB
  5. LETAIRIS [Concomitant]
     Active Substance: AMBRISENTAN
  6. BUMETANIDE. [Concomitant]
     Active Substance: BUMETANIDE
  7. CIPROFLOXACIN HCL (CIPROFLOXACIN HYDROCHLORIDE) [Concomitant]
  8. NEOMYCIN AND POLYMYXIN B SULFATES AND DEXAMET (DEXAMETHASONE, NEOMYCIN SULFATE, POLYMYXIN B SULFATE) [Concomitant]
  9. OPSUMIT [Suspect]
     Active Substance: MACITENTAN
     Indication: PULMONARY ARTERIAL HYPERTENSION
     Route: 048
     Dates: start: 20140303

REACTIONS (2)
  - Swelling [None]
  - Tongue biting [None]

NARRATIVE: CASE EVENT DATE: 20140910
